FAERS Safety Report 9270181 (Version 2)
Quarter: 2013Q2

REPORT INFORMATION
  Report Type: Spontaneous
  Country: ES (occurrence: ES)
  Receive Date: 20130503
  Receipt Date: 20130508
  Transmission Date: 20140414
  Serious: Yes (Other)
  Sender: FDA-Public Use
  Company Number: ES-GLAXOSMITHKLINE-B0871964A

PATIENT
  Age: 81 Year
  Sex: Female

DRUGS (7)
  1. REVOLADE [Suspect]
     Indication: IDIOPATHIC THROMBOCYTOPENIC PURPURA
     Dosage: 50MG PER DAY
     Route: 048
     Dates: start: 20121024, end: 20130227
  2. ADIRO [Concomitant]
     Route: 048
  3. BISOPROLOL [Concomitant]
     Route: 048
  4. LORMETAZEPAM [Concomitant]
     Route: 048
  5. OMEPRAZOL [Concomitant]
     Route: 048
  6. PARACETAMOL [Concomitant]
     Route: 048
  7. ENALAPRIL [Concomitant]
     Route: 048

REACTIONS (3)
  - Erythroblastosis [Recovered/Resolved]
  - Blast cell proliferation [Recovered/Resolved]
  - Myelofibrosis [Unknown]
